FAERS Safety Report 9430272 (Version 1)
Quarter: 2013Q3

REPORT INFORMATION
  Report Type: Report from Study
  Country: US (occurrence: US)
  Receive Date: 20130730
  Receipt Date: 20130730
  Transmission Date: 20140515
  Serious: Yes (Other)
  Sender: FDA-Public Use
  Company Number: US-GLAXOSMITHKLINE-A1005531A

PATIENT
  Sex: Female

DRUGS (1)
  1. ADVAIR [Suspect]
     Indication: CHRONIC OBSTRUCTIVE PULMONARY DISEASE
     Route: 055

REACTIONS (6)
  - Gastric ulcer [Unknown]
  - Gastric ulcer haemorrhage [Unknown]
  - Drug administration error [Unknown]
  - Skin wrinkling [Unknown]
  - Asthenia [Unknown]
  - Somnolence [Unknown]
